FAERS Safety Report 8063249-5 (Version None)
Quarter: 2012Q1

REPORT INFORMATION
  Report Type: 
  Country: None (occurrence: None)
  Receive Date: 20120123
  Receipt Date: 20120117
  Transmission Date: 20120608
  Serious: Yes (Other)
  Sender: FDA-Public Use
  Company Number: PHEH2010US03876

PATIENT
  Sex: Male

DRUGS (33)
  1. PROMETHAZINE [Concomitant]
  2. NEOSPORIN [Concomitant]
  3. GENTAMICIN [Concomitant]
  4. METHADONE HCL [Concomitant]
  5. ZOCOR [Concomitant]
  6. FLUNISOLIDE [Concomitant]
  7. ANTIVERT [Concomitant]
  8. AREDIA [Suspect]
  9. OXYCODONE HCL [Concomitant]
  10. VANCOMYCIN [Concomitant]
  11. PRILOSEC [Concomitant]
  12. MISOPROSTOL [Concomitant]
  13. ZYVOX [Concomitant]
  14. ANCEF [Concomitant]
  15. HEPARIN [Concomitant]
  16. NEXIUM [Concomitant]
  17. ZOMETA [Suspect]
  18. MARCAINE [Concomitant]
  19. KETOCONAZOLE [Concomitant]
  20. PEPCID [Concomitant]
  21. CHEMOTHERAPEUTICS [Concomitant]
  22. TEMAZEPAM [Concomitant]
  23. BACITRACIN [Concomitant]
  24. LEXAPRO [Concomitant]
  25. INDOCIN [Concomitant]
  26. CLONAZEPAM [Concomitant]
  27. KANTREX [Concomitant]
  28. INDIGO CARMINE [Concomitant]
  29. SOMA [Concomitant]
  30. HYDROCORTISONE [Concomitant]
  31. ALLEGRA [Concomitant]
  32. EFFEXOR [Concomitant]
  33. HYTRIN [Concomitant]

REACTIONS (20)
  - ANXIETY [None]
  - OSTEOMYELITIS [None]
  - HYPERTENSION [None]
  - PROSTATE CANCER METASTATIC [None]
  - CONFUSIONAL STATE [None]
  - ANHEDONIA [None]
  - DISABILITY [None]
  - DIVERTICULUM [None]
  - BONE LOSS [None]
  - PAIN [None]
  - DENTAL CARIES [None]
  - VISUAL IMPAIRMENT [None]
  - CEREBROVASCULAR ACCIDENT [None]
  - NEUROPATHY PERIPHERAL [None]
  - BACK PAIN [None]
  - OSTEONECROSIS OF JAW [None]
  - DEFORMITY [None]
  - SPINAL CORD COMPRESSION [None]
  - PATHOLOGICAL FRACTURE [None]
  - NEURITIS [None]
